FAERS Safety Report 8135007-4 (Version None)
Quarter: 2012Q1

REPORT INFORMATION
  Report Type: 
  Country: None (occurrence: None)
  Receive Date: 20120214
  Receipt Date: 20120208
  Transmission Date: 20120608
  Serious: Yes (Hospitalization, Other)
  Sender: FDA-Public Use
  Company Number: US-AMGEN-USASP2012008735

PATIENT
  Age: 78 Year
  Sex: Female
  Weight: 68 kg

DRUGS (3)
  1. EPOGEN [Suspect]
     Indication: NEPHROGENIC ANAEMIA
     Dosage: 4000 UNIT, UNK
     Dates: end: 20110901
  2. EPOGEN [Suspect]
     Dosage: 10000 UNIT, UNK
     Dates: start: 20111001, end: 20111001
  3. EPOGEN [Suspect]
     Dosage: 15000 IU, 3 TIMES/WK

REACTIONS (2)
  - THERAPEUTIC RESPONSE DECREASED [None]
  - REFRACTORY ANAEMIA [None]
